FAERS Safety Report 15887453 (Version 2)
Quarter: 2019Q1

REPORT INFORMATION
  Report Type: Spontaneous
  Country: FR (occurrence: FR)
  Receive Date: 20190130
  Receipt Date: 20190329
  Transmission Date: 20190417
  Serious: Yes (Death, Hospitalization)
  Sender: FDA-Public Use
  Company Number: FR-ROCHE-2251048

PATIENT
  Age: 68 Year
  Sex: Female
  Weight: 49 kg

DRUGS (2)
  1. XELODA [Suspect]
     Active Substance: CAPECITABINE
     Indication: COLON CANCER
     Route: 048
     Dates: start: 20180926, end: 20181008
  2. OXALIPLATINE [Concomitant]
     Active Substance: OXALIPLATIN
     Indication: COLON CANCER
     Dosage: 170 MG/CYCLE
     Route: 042
     Dates: start: 20180926, end: 20180926

REACTIONS (8)
  - Haemodynamic instability [Fatal]
  - Nausea [Fatal]
  - Metabolic acidosis [Fatal]
  - Diarrhoea [Fatal]
  - Hypovolaemic shock [Fatal]
  - Acute kidney injury [Fatal]
  - Hypokalaemia [Fatal]
  - Vomiting [Fatal]

NARRATIVE: CASE EVENT DATE: 20180927
